FAERS Safety Report 11230511 (Version 1)
Quarter: 2015Q3

REPORT INFORMATION
  Report Type: Other
  Country: BR (occurrence: BR)
  Receive Date: 20150701
  Receipt Date: 20150701
  Transmission Date: 20151125
  Serious: Yes (Hospitalization)
  Sender: FDA-Public Use
  Company Number: BR-LUPIN PHARMACEUTICALS INC.-2015-01916

PATIENT
  Age: 64 Year
  Sex: Female

DRUGS (1)
  1. DOXYCYCLINE. [Suspect]
     Active Substance: DOXYCYCLINE
     Indication: ERYSIPELAS
     Route: 065

REACTIONS (1)
  - Drug eruption [Recovering/Resolving]
